FAERS Safety Report 5324943-X (Version None)
Quarter: 2007Q2

REPORT INFORMATION
  Report Type: 
  Country: None (occurrence: None)
  Receive Date: 20070515
  Receipt Date: 20070507
  Transmission Date: 20071010
  Serious: Yes (Hospitalization)
  Sender: FDA-Public Use
  Company Number: BR-BRISTOL-MYERS SQUIBB COMPANY-13776042

PATIENT
  Age: 76 Year
  Sex: Female

DRUGS (5)
  1. MAXCEF [Suspect]
     Indication: PNEUMONIA
     Dosage: DOSE WAS INTERUPTED ON 03-MAY-2007, THE DOSE WAS DECREASED TO 1 G/D ON 04-MAY-2007.
     Route: 042
     Dates: start: 20070426, end: 20070505
  2. VANCOMYCIN [Concomitant]
     Indication: KIDNEY INFECTION
     Dates: start: 20070412
  3. IRINOTECAN [Concomitant]
     Indication: CHEMOTHERAPY
     Dates: end: 20070420
  4. ERBITUX [Concomitant]
     Indication: CHEMOTHERAPY
     Dates: end: 20070420
  5. AVASTIN [Concomitant]
     Indication: CHEMOTHERAPY
     Dates: end: 20070420

REACTIONS (5)
  - CONFUSIONAL STATE [None]
  - COORDINATION ABNORMAL [None]
  - RENAL FAILURE [None]
  - SOMNOLENCE [None]
  - SOPOR [None]
